FAERS Safety Report 9761420 (Version 1)
Quarter: 2013Q4

REPORT INFORMATION
  Report Type: Spontaneous
  Country: FR (occurrence: FR)
  Receive Date: 20131216
  Receipt Date: 20131216
  Transmission Date: 20140711
  Serious: Yes (Hospitalization)
  Sender: FDA-Public Use
  Company Number: PHHY2013FR146045

PATIENT
  Age: 57 Year
  Sex: Male

DRUGS (7)
  1. LEPONEX [Suspect]
     Dosage: 2 DF, QD
     Route: 048
     Dates: start: 20131115, end: 20131115
  2. CO-RENITEC [Concomitant]
     Dosage: UNK
  3. CRESTOR [Concomitant]
     Dosage: UNK
  4. DEPAKINE [Concomitant]
     Dosage: UNK
  5. VALIUM [Concomitant]
     Dosage: UNK
  6. ABILIFY [Concomitant]
     Dosage: UNK
  7. BECOTIDE [Concomitant]
     Dosage: UNK

REACTIONS (1)
  - Coma [Recovered/Resolved]
